FAERS Safety Report 21337224 (Version 2)
Quarter: 2022Q4

REPORT INFORMATION
  Report Type: Report from Study
  Country: ZA (occurrence: ZA)
  Receive Date: 20220915
  Receipt Date: 20221102
  Transmission Date: 20230112
  Serious: Yes (Death, Hospitalization)
  Sender: FDA-Public Use
  Company Number: ZA-NOVARTISPH-NVSC2022ZA206388

PATIENT
  Sex: Male

DRUGS (1)
  1. COSENTYX [Suspect]
     Active Substance: SECUKINUMAB
     Indication: Psoriatic arthropathy
     Dosage: 150 MG, QMO
     Route: 058
     Dates: start: 20220620

REACTIONS (5)
  - Internal haemorrhage [Fatal]
  - Platelet count decreased [Fatal]
  - Wound infection [Recovering/Resolving]
  - Infection [Unknown]
  - Depressed mood [Recovering/Resolving]
